FAERS Safety Report 6654494-1 (Version None)
Quarter: 2010Q1

REPORT INFORMATION
  Report Type: 
  Country: None (occurrence: None)
  Receive Date: 20100326
  Receipt Date: 20100323
  Transmission Date: 20100710
  Serious: Yes (Death)
  Sender: FDA-Public Use
  Company Number: JP-PFIZER INC-2010032142

PATIENT
  Age: 70 Year
  Sex: Female

DRUGS (6)
  1. CISPLATIN [Suspect]
     Indication: UTERINE CANCER
     Dosage: 50 MG/M2, 75 MG, INJ
     Dates: start: 20091103, end: 20091103
  2. CISPLATIN [Suspect]
     Dosage: 50 MG/M2, 75 MG, INJ
     Dates: start: 20091130, end: 20091130
  3. CISPLATIN [Suspect]
     Dosage: 50 MG/M2, 75 MG, INJ
     Dates: start: 20100120, end: 20100120
  4. ADRIACIN [Suspect]
     Indication: UTERINE CANCER
     Dosage: 60 MG/M2, 90 MG, INJ
     Dates: start: 20091103, end: 20091103
  5. ADRIACIN [Suspect]
     Dosage: 60 MG/M2, 90 MG, INJ
     Dates: start: 20091130, end: 20091130
  6. ADRIACIN [Suspect]
     Dosage: 60 MG/M2, 90 MG, INJ
     Dates: start: 20100120, end: 20100120

REACTIONS (1)
  - DEATH [None]
